FAERS Safety Report 10424637 (Version 1)
Quarter: 2014Q3

REPORT INFORMATION
  Report Type: Spontaneous
  Country: FR (occurrence: FR)
  Receive Date: 20140902
  Receipt Date: 20140902
  Transmission Date: 20150326
  Serious: Yes (Hospitalization, Other)
  Sender: FDA-Public Use
  Company Number: FR-PFIZER INC-2014242648

PATIENT
  Age: 53 Year
  Sex: Male

DRUGS (6)
  1. VITAMIN B1 [Concomitant]
     Active Substance: THIAMINE HYDROCHLORIDE
     Dosage: UNK
  2. VITAMIN B6 [Concomitant]
     Active Substance: PYRIDOXINE HYDROCHLORIDE
     Dosage: UNK
  3. CREON [Concomitant]
     Active Substance: PANCRELIPASE AMYLASE\PANCRELIPASE LIPASE\PANCRELIPASE PROTEASE
     Dosage: UNK
  4. PANTOPRAZOLE [Suspect]
     Active Substance: PANTOPRAZOLE SODIUM
     Dosage: 40 MG, 1X/DAY
     Route: 048
  5. LIORESAL [Suspect]
     Active Substance: BACLOFEN
     Indication: ALCOHOLISM
     Dosage: UNK
     Route: 048
     Dates: end: 20140401
  6. MOTILIUM [Concomitant]
     Active Substance: DOMPERIDONE
     Dosage: UNK

REACTIONS (4)
  - Hypokalaemia [Recovered/Resolved]
  - Loss of consciousness [Recovered/Resolved]
  - Hyponatraemia [Recovered/Resolved]
  - Convulsion [Recovered/Resolved]

NARRATIVE: CASE EVENT DATE: 20140401
